FAERS Safety Report 9618428 (Version 1)
Quarter: 2013Q4

REPORT INFORMATION
  Report Type: Report from Study
  Country: BR (occurrence: BR)
  Receive Date: 20131014
  Receipt Date: 20131014
  Transmission Date: 20140711
  Serious: Yes (Disabling)
  Sender: FDA-Public Use
  Company Number: BR-ROCHE-1288404

PATIENT
  Age: 30 Year
  Sex: Male

DRUGS (2)
  1. CLONAZEPAM [Suspect]
     Indication: SCHIZOPHRENIA, PARANOID TYPE
     Route: 065
  2. OLANZAPINE [Suspect]
     Indication: SCHIZOPHRENIA, PARANOID TYPE
     Route: 065

REACTIONS (3)
  - Activities of daily living impaired [Unknown]
  - Disturbance in attention [Unknown]
  - Memory impairment [Unknown]
